FAERS Safety Report 4676482-7 (Version None)
Quarter: 2005Q2

REPORT INFORMATION
  Report Type: 
  Country: None (occurrence: None)
  Receive Date: 20050525
  Receipt Date: 20050512
  Transmission Date: 20051028
  Serious: Yes (Hospitalization)
  Sender: FDA-Public Use
  Company Number: 2005064992

PATIENT
  Sex: Female

DRUGS (1)
  1. DETRUSITOL                 (TOLTERODINE L-TARTRATE) [Suspect]
     Indication: URGE INCONTINENCE
     Dosage: 1 MG (1 MG, 1 IN 1 D), ORAL
     Route: 048
     Dates: start: 20050324, end: 20050422

REACTIONS (1)
  - MYOCARDIAL INFARCTION [None]
